FAERS Safety Report 17510972 (Version 4)
Quarter: 2020Q2

REPORT INFORMATION
  Report Type: Report from Study
  Country: FR (occurrence: FR)
  Receive Date: 20200306
  Receipt Date: 20200619
  Transmission Date: 20200713
  Serious: Yes (Death, Hospitalization, Other)
  Sender: FDA-Public Use
  Company Number: FR-JAZZ-2020-FR-003231

PATIENT

DRUGS (2)
  1. DEFITELIO [Suspect]
     Active Substance: DEFIBROTIDE SODIUM
     Indication: VENOOCCLUSIVE LIVER DISEASE
     Dosage: 25.3 MILLIGRAM/KILOGRAM/DAY
     Route: 042
     Dates: start: 20190318
  2. DEFITELIO [Suspect]
     Active Substance: DEFIBROTIDE SODIUM
     Dosage: 12.5 MILLIGRAM/KILOGRAM/DAY
     Route: 042
     Dates: start: 20190325, end: 20190327

REACTIONS (9)
  - Femur fracture [Unknown]
  - Mouth haemorrhage [Recovering/Resolving]
  - Blood phosphorus decreased [Recovered/Resolved]
  - Blood potassium decreased [Recovered/Resolved]
  - Anxiety [Unknown]
  - Oral disorder [Recovering/Resolving]
  - Hypocalcaemia [Recovered/Resolved]
  - Disease recurrence [Fatal]
  - Off label use [Unknown]

NARRATIVE: CASE EVENT DATE: 20190726
